FAERS Safety Report 19609944 (Version 2)
Quarter: 2021Q3

REPORT INFORMATION
  Report Type: Report from Study
  Country: GB (occurrence: GB)
  Receive Date: 20210726
  Receipt Date: 20210802
  Transmission Date: 20211014
  Serious: Yes (Other)
  Sender: FDA-Public Use
  Company Number: GB-EMD SERONO-9253018

PATIENT
  Age: 44 Year
  Sex: Female

DRUGS (1)
  1. MAVENCLAD [Suspect]
     Active Substance: CLADRIBINE
     Indication: MULTIPLE SCLEROSIS
     Dosage: YEAR ONE WEEK ONE THERAPY TWO TABLETS ON DAYS 1 TO 4 AND ONE TABLET ON DAY 5
     Route: 048
     Dates: start: 20210712

REACTIONS (2)
  - Breast abscess [Unknown]
  - Erythema [Unknown]

NARRATIVE: CASE EVENT DATE: 202107
